FAERS Safety Report 6960770-5 (Version None)
Quarter: 2010Q3

REPORT INFORMATION
  Report Type: 
  Country: None (occurrence: None)
  Receive Date: 20100901
  Receipt Date: 20100818
  Transmission Date: 20110219
  Serious: Yes (Death, Other)
  Sender: FDA-Public Use
  Company Number: JP-ROCHE-720044

PATIENT
  Age: 51 Year
  Sex: Male

DRUGS (7)
  1. PEGASYS [Suspect]
     Indication: HEPATITIS C
     Dosage: NOTE: DOSAGE IS UNCERTAIN.
     Route: 058
  2. COPEGUS [Suspect]
     Indication: HEPATITIS C
     Dosage: NOTE: DOSAGE IS UNCERTAIN.
     Route: 048
  3. PEG-INTRON [Suspect]
     Dosage: NOTE: 0.5UG/KG
     Route: 058
     Dates: start: 20060401, end: 20060501
  4. PEG-INTRON [Suspect]
     Dosage: NOTE: 0.5UG/KG
     Route: 058
     Dates: start: 20060801, end: 20071001
  5. DENOSINE [Suspect]
     Indication: CYTOMEGALOVIRUS INFECTION
     Route: 065
     Dates: start: 20080201
  6. CYCLOSPORINE [Suspect]
     Indication: LIVER TRANSPLANT
     Route: 065
     Dates: start: 20051101, end: 20080101
  7. ADRENOCORTICAL HORMONE NOS [Suspect]
     Indication: PRODUCT USED FOR UNKNOWN INDICATION
     Dosage: DRUG REPORTED;; ADRENAL HORMONE PREPARATIONS
     Route: 041
     Dates: start: 20080201

REACTIONS (7)
  - AUTOIMMUNE HEPATITIS [None]
  - CYTOMEGALOVIRUS INFECTION [None]
  - DIABETES MELLITUS [None]
  - HYPOPROTEINAEMIA [None]
  - PNEUMOCYSTIS JIROVECI PNEUMONIA [None]
  - PROTEINURIA [None]
  - RENAL FAILURE [None]
